FAERS Safety Report 8816897 (Version 1)
Quarter: 2012Q4

REPORT INFORMATION
  Report Type: Spontaneous
  Country: US (occurrence: None)
  Receive Date: 20121002
  Receipt Date: 20121002
  Transmission Date: 20130627
  Serious: Yes (Hospitalization)
  Sender: FDA-Public Use
  Company Number: None

PATIENT
  Age: 50 Year
  Sex: Female
  Weight: 61.24 kg

DRUGS (2)
  1. TRAMADOL HYDROCHLORIDE EXTENDED RELEASE [Suspect]
     Indication: PAIN MANAGEMENT
     Dosage: 300 mg. XL once/day po
     Route: 048
     Dates: start: 20120101, end: 20120919
  2. TRAMADOL [Suspect]
     Indication: PAIN MANAGEMENT
     Dosage: 50 mg. 1-2 q 6 PRN po
     Route: 048
     Dates: start: 20100101, end: 20120919

REACTIONS (1)
  - Grand mal convulsion [None]
